FAERS Safety Report 8180853-4 (Version None)
Quarter: 2012Q1

REPORT INFORMATION
  Report Type: 
  Country: None (occurrence: None)
  Receive Date: 20120301
  Receipt Date: 20120301
  Transmission Date: 20120608
  Serious: No
  Sender: FDA-Public Use
  Company Number: None

PATIENT

DRUGS (1)
  1. PROPECIA ONE TABLET DAILY [Suspect]
     Dosage: FOR DECADES

REACTIONS (1)
  - BLOOD TESTOSTERONE ABNORMAL [None]
